FAERS Safety Report 6081483-0 (Version None)
Quarter: 2009Q1

REPORT INFORMATION
  Report Type: 
  Country: None (occurrence: None)
  Receive Date: 20090213
  Receipt Date: 20090210
  Transmission Date: 20090719
  Serious: Yes (Hospitalization)
  Sender: FDA-Public Use
  Company Number: 1000003150

PATIENT
  Age: 72 Year
  Sex: Male
  Weight: 60 kg

DRUGS (12)
  1. MEMANTINE HCL [Suspect]
     Indication: DEMENTIA ALZHEIMER'S TYPE
     Dosage: 20 MG (20 MG, 1 IN 1 D), ORAL
     Route: 048
     Dates: start: 20080501, end: 20081222
  2. DIMETHICONE [Concomitant]
  3. MOMETASONE FUROATE [Concomitant]
  4. DEPRODONE PROPIONATE [Concomitant]
  5. DEXAMETHASONE DRY DISTILLATION TAR OF DEFATTING SOYBEAN [Concomitant]
  6. INDOMETHACIN [Concomitant]
  7. SENNOSIDE [Concomitant]
  8. BIFIDOBACTERIUM [Concomitant]
  9. DAI-KENCHU-TO [Concomitant]
  10. PIRENOXINE [Concomitant]
  11. MAGNESIUM OXIDE [Concomitant]
  12. KETOPROFEN [Concomitant]

REACTIONS (13)
  - ALANINE AMINOTRANSFERASE INCREASED [None]
  - BLOOD ALBUMIN DECREASED [None]
  - BLOOD GLUCOSE INCREASED [None]
  - BLOOD URIC ACID INCREASED [None]
  - DEEP VEIN THROMBOSIS [None]
  - FIBRIN DEGRADATION PRODUCTS INCREASED [None]
  - GAMMA-GLUTAMYLTRANSFERASE INCREASED [None]
  - HAEMORRHAGE [None]
  - PLATELET COUNT DECREASED [None]
  - PROTEIN TOTAL DECREASED [None]
  - PROTEIN URINE PRESENT [None]
  - PULMONARY INFARCTION [None]
  - RED BLOOD CELL COUNT DECREASED [None]
